FAERS Safety Report 21700174 (Version 4)
Quarter: 2023Q1

REPORT INFORMATION
  Report Type: Report from Study
  Country: ES (occurrence: ES)
  Receive Date: 20221208
  Receipt Date: 20230127
  Transmission Date: 20230417
  Serious: Yes (Other)
  Sender: FDA-Public Use
  Company Number: ES-ABBVIE-4227780

PATIENT
  Age: 73 Year
  Sex: Female

DRUGS (2)
  1. CARBIDOPA\LEVODOPA [Suspect]
     Active Substance: CARBIDOPA\LEVODOPA
     Indication: Parkinson^s disease
     Route: 050
     Dates: start: 202212, end: 20221228
  2. CARBIDOPA\LEVODOPA [Suspect]
     Active Substance: CARBIDOPA\LEVODOPA
     Route: 050
     Dates: start: 20220310, end: 202212

REACTIONS (8)
  - Decreased appetite [Recovered/Resolved]
  - Abdominal pain upper [Recovered/Resolved]
  - Constipation [Recovered/Resolved]
  - Abdominal discomfort [Unknown]
  - Intentional product misuse [Unknown]
  - Device expulsion [Unknown]
  - Nausea [Recovered/Resolved]
  - Off label use [Unknown]

NARRATIVE: CASE EVENT DATE: 20221115
